FAERS Safety Report 24010541 (Version 2)
Quarter: 2024Q2

REPORT INFORMATION
  Report Type: Spontaneous
  Country: US (occurrence: US)
  Receive Date: 20240625
  Receipt Date: 20240625
  Transmission Date: 20240716
  Serious: No
  Sender: FDA-Public Use
  Company Number: ROCHE-10000006943

PATIENT

DRUGS (1)
  1. XOLAIR [Suspect]
     Active Substance: OMALIZUMAB
     Indication: Product used for unknown indication
     Route: 065

REACTIONS (7)
  - Anaphylactic reaction [Unknown]
  - Dizziness [Unknown]
  - Nausea [Unknown]
  - Feeling abnormal [Unknown]
  - Throat tightness [Unknown]
  - Chest discomfort [Unknown]
  - Mast cell activation syndrome [Unknown]
